FAERS Safety Report 18565353 (Version 1)
Quarter: 2020Q4

REPORT INFORMATION
  Report Type: Spontaneous
  Country: FR (occurrence: FR)
  Receive Date: 20201201
  Receipt Date: 20201201
  Transmission Date: 20210114
  Serious: Yes (Other)
  Sender: FDA-Public Use
  Company Number: FR-MYLANLABS-2020M1099082

PATIENT
  Age: 53 Year
  Sex: Male

DRUGS (1)
  1. FLUOROURACIL. [Suspect]
     Active Substance: FLUOROURACIL
     Indication: OROPHARYNGEAL CANCER
     Dosage: 6300 MILLIGRAM, CYCLE

REACTIONS (4)
  - Hypotension [Recovered/Resolved]
  - Bradycardia [Recovered/Resolved]
  - Anaphylactic shock [Recovered/Resolved]
  - Bradypnoea [Recovered/Resolved]
